FAERS Safety Report 5483972-6 (Version None)
Quarter: 2007Q4

REPORT INFORMATION
  Report Type: 
  Country: None (occurrence: None)
  Receive Date: 20071012
  Receipt Date: 20071002
  Transmission Date: 20080405
  Serious: Yes (Hospitalization)
  Sender: FDA-Public Use
  Company Number: CO-ROCHE-522629

PATIENT
  Age: 65 Year
  Sex: Female
  Weight: 56 kg

DRUGS (2)
  1. BONIVA [Suspect]
     Indication: OSTEOPOROSIS
     Dosage: FREQUENCY REPORTED AS MONTHLY
     Route: 048
     Dates: start: 20070828, end: 20070828
  2. 1 CONCOMITANT DRUG [Concomitant]
     Indication: OSTEOPOROSIS
     Dosage: DRUG REPORTED AS POSTURED/CALCIUM + VIT D. FREQUENCY REPORTED AS ^DAY^.
     Route: 048
     Dates: start: 20070828, end: 20070904

REACTIONS (5)
  - ABDOMINAL DISTENSION [None]
  - ACHOLIA [None]
  - CHOLURIA [None]
  - HYPERBILIRUBINAEMIA [None]
  - TRANSAMINASES INCREASED [None]
